FAERS Safety Report 10936746 (Version 1)
Quarter: 2015Q1

REPORT INFORMATION
  Report Type: Spontaneous
  Country: US (occurrence: None)
  Receive Date: 20150129
  Receipt Date: 20150129
  Transmission Date: 20150721
  Serious: No
  Sender: FDA-Public Use
  Company Number: A-US2014-103762

PATIENT
  Age: 62 Year
  Sex: Female

DRUGS (4)
  1. FUROSEMIDE (FUROSEMIDE SODIUM) [Concomitant]
  2. NORVASC [Concomitant]
     Active Substance: AMLODIPINE BESYLATE
  3. OPSUMIT [Suspect]
     Active Substance: MACITENTAN
     Indication: PULMONARY ARTERIAL HYPERTENSION
     Route: 048
     Dates: start: 20140727, end: 20140729
  4. SILDENAFIL. [Concomitant]
     Active Substance: SILDENAFIL

REACTIONS (2)
  - Feeling jittery [None]
  - Drug intolerance [None]

NARRATIVE: CASE EVENT DATE: 20140727
